FAERS Safety Report 22331999 (Version 1)
Quarter: 2023Q2

REPORT INFORMATION
  Report Type: Spontaneous
  Country: US (occurrence: None)
  Receive Date: 20230517
  Receipt Date: 20230517
  Transmission Date: 20230722
  Serious: No
  Sender: FDA-Public Use
  Company Number: US-USAntibiotics-000156

PATIENT
  Age: 79 Year
  Sex: Male

DRUGS (3)
  1. AMOXIL [Suspect]
     Active Substance: AMOXICILLIN
     Indication: Testicular disorder
     Dosage: 1 IN 12 HOUR
     Dates: start: 20220321
  2. OFEV [Suspect]
     Active Substance: NINTEDANIB
     Indication: Idiopathic pulmonary fibrosis
     Dosage: 300 MILLIGRAMS DAILY DOSE (150 MILLIGRAMS, 1 IN 12 HOUR)
     Route: 048
     Dates: start: 20220209
  3. OFEV [Suspect]
     Active Substance: NINTEDANIB
     Indication: Interstitial lung disease
     Dosage: 300 MILLIGRAMS (150 MILLIGRAMS, 1 IN 12 HOUR)
     Route: 048
     Dates: start: 20220209

REACTIONS (4)
  - Weight decreased [Not Recovered/Not Resolved]
  - Diarrhoea [Not Recovered/Not Resolved]
  - Vomiting [Recovered/Resolved]
  - Diarrhoea [Recovered/Resolved]

NARRATIVE: CASE EVENT DATE: 20220323
